FAERS Safety Report 8103843-6 (Version None)
Quarter: 2012Q1

REPORT INFORMATION
  Report Type: 
  Country: None (occurrence: None)
  Receive Date: 20120201
  Receipt Date: 20120120
  Transmission Date: 20120608
  Serious: Yes (Hospitalization, Disabling)
  Sender: FDA-Public Use
  Company Number: PHHY2012DE006018

PATIENT
  Age: 28 Year
  Sex: Male
  Weight: 95 kg

DRUGS (1)
  1. CLOZAPINE [Suspect]
     Indication: SCHIZOPHRENIA, PARANOID TYPE
     Dosage: 450 MG
     Route: 048
     Dates: start: 20070716

REACTIONS (2)
  - FUNCTIONAL GASTROINTESTINAL DISORDER [None]
  - APPENDICITIS [None]
